FAERS Safety Report 5955802-7 (Version None)
Quarter: 2008Q4

REPORT INFORMATION
  Report Type: 
  Country: None (occurrence: None)
  Receive Date: 20081117
  Receipt Date: 20081103
  Transmission Date: 20090506
  Serious: Yes (Other)
  Sender: FDA-Public Use
  Company Number: ES-GENENTECH-271315

PATIENT
  Age: 81 Year
  Sex: Female

DRUGS (3)
  1. MABTHERA [Suspect]
     Indication: HAIRY CELL LEUKAEMIA
     Dosage: 660 MG, UNK
     Route: 042
     Dates: start: 20080730, end: 20080730
  2. LEUKERAN [Suspect]
     Indication: HAIRY CELL LEUKAEMIA
     Dosage: 28 MG, QD
     Route: 048
     Dates: start: 20080731, end: 20080801
  3. PREDNISONE TAB [Suspect]
     Indication: HAIRY CELL LEUKAEMIA
     Dosage: UNK
     Route: 048
     Dates: start: 20080131, end: 20080801

REACTIONS (2)
  - ECCHYMOSIS [None]
  - HAEMORRHAGE [None]
